FAERS Safety Report 4421220-6 (Version None)
Quarter: 2004Q3

REPORT INFORMATION
  Report Type: 
  Country: None (occurrence: None)
  Receive Date: 20040707
  Receipt Date: 20040423
  Transmission Date: 20050211
  Serious: No
  Sender: FDA-Public Use
  Company Number: SU-2004-002313

PATIENT
  Age: 64 Year
  Sex: Female
  Weight: 81.6475 kg

DRUGS (9)
  1. BENICAR HCT [Suspect]
     Indication: HYPERTENSION
     Dosage: 40.125 MG QD PO
     Route: 048
     Dates: start: 20040403
  2. SYNTHROID [Concomitant]
  3. OGEN [Concomitant]
  4. NEXIUM [Concomitant]
  5. CELEBREX [Concomitant]
  6. METHADONE HCL [Concomitant]
  7. FIORICET [Concomitant]
  8. AMBIEN [Concomitant]
  9. FLEXERIL [Concomitant]

REACTIONS (1)
  - SOMNOLENCE [None]
